FAERS Safety Report 15276424 (Version 1)
Quarter: 2018Q3

REPORT INFORMATION
  Report Type: Spontaneous
  Country: US (occurrence: US)
  Receive Date: 20180728
  Receipt Date: 20180728
  Transmission Date: 20181010
  Serious: Yes (Hospitalization)
  Sender: FDA-Public Use
  Company Number: None

PATIENT
  Age: 15 Year
  Sex: Female

DRUGS (1)
  1. REMICADE [Suspect]
     Active Substance: INFLIXIMAB
     Indication: PRODUCT USED FOR UNKNOWN INDICATION
     Dosage: ?          OTHER FREQUENCY:WEEKS 2, 6 THEN EV;?
     Route: 042
     Dates: start: 20180306, end: 20180314

REACTIONS (2)
  - Muscle spasms [None]
  - Haemorrhage [None]

NARRATIVE: CASE EVENT DATE: 20180705
